FAERS Safety Report 10222870 (Version 3)
Quarter: 2014Q3

REPORT INFORMATION
  Report Type: Report from Study
  Country: JP (occurrence: JP)
  Receive Date: 20140607
  Receipt Date: 20140911
  Transmission Date: 20150326
  Serious: Yes (Hospitalization)
  Sender: FDA-Public Use
  Company Number: JP-AMGEN-JPNCT2014041699

PATIENT
  Age: 57 Year
  Sex: Female
  Weight: 46 kg

DRUGS (7)
  1. XARELTO [Concomitant]
     Active Substance: RIVAROXABAN
     Indication: VENOUS THROMBOSIS LIMB
     Dosage: UNK ML, UNK
     Route: 048
  2. ROMIPLOSTIM - KHK [Suspect]
     Active Substance: ROMIPLOSTIM
     Indication: IMMUNE THROMBOCYTOPENIC PURPURA
     Dosage: 5 MUG/KG, QD
     Route: 058
     Dates: start: 20130717, end: 20140519
  3. IMURAN [Concomitant]
     Active Substance: AZATHIOPRINE
     Indication: IMMUNE THROMBOCYTOPENIC PURPURA
     Dosage: 50 MG, UNK
     Route: 048
     Dates: start: 20131216
  4. PREDONINE [Concomitant]
     Active Substance: PREDNISOLONE\PREDNISOLONE ACETATE\PREDNISOLONE SODIUM SUCCINATE
     Indication: IMMUNE THROMBOCYTOPENIC PURPURA
     Dosage: 5 MG, UNK
     Route: 048
     Dates: start: 20130717
  5. TAKEPRON [Concomitant]
     Active Substance: LANSOPRAZOLE
     Indication: PROPHYLAXIS
     Dosage: UNK
     Route: 048
  6. EDIROL [Concomitant]
     Active Substance: ELDECALCITOL
     Indication: PROPHYLAXIS
     Dosage: UNK
     Route: 048
  7. BONOTEO [Concomitant]
     Active Substance: MINODRONIC ACID
     Indication: PROPHYLAXIS
     Dosage: UNK
     Route: 048

REACTIONS (1)
  - Deep vein thrombosis [Recovering/Resolving]

NARRATIVE: CASE EVENT DATE: 20140519
